FAERS Safety Report 14612534 (Version 1)
Quarter: 2018Q1

REPORT INFORMATION
  Report Type: Spontaneous
  Country: US (occurrence: US)
  Receive Date: 20180308
  Receipt Date: 20180308
  Transmission Date: 20180509
  Serious: No
  Sender: FDA-Public Use
  Company Number: US-GLAXOSMITHKLINE-US2018GSK038956

PATIENT
  Sex: Female

DRUGS (1)
  1. BENLYSTA [Suspect]
     Active Substance: BELIMUMAB
     Indication: SYSTEMIC LUPUS ERYTHEMATOSUS
     Dosage: 200 MG, WE
     Route: 058
     Dates: end: 201802

REACTIONS (8)
  - Adverse drug reaction [Recovered/Resolved]
  - Pyrexia [Unknown]
  - Bladder disorder [Unknown]
  - Nausea [Unknown]
  - Influenza [Recovering/Resolving]
  - Influenza like illness [Unknown]
  - Malaise [Unknown]
  - Depression [Recovered/Resolved]
